FAERS Safety Report 8809642 (Version 1)
Quarter: 2012Q4

REPORT INFORMATION
  Report Type: 
  Country: US (occurrence: US)
  Receive Date: 20120926
  Receipt Date: 20120926
  Transmission Date: 20130627
  Serious: Yes (Death, Other)
  Sender: FDA-Public Use
  Company Number: US-ROCHE-1124495

PATIENT
  Sex: Female

DRUGS (6)
  1. AVASTIN [Suspect]
     Indication: RECTOSIGMOID CANCER
     Route: 065
  2. XELODA [Suspect]
     Indication: RECTOSIGMOID CANCER
     Route: 065
     Dates: start: 20050928
  3. XELODA [Suspect]
     Route: 065
  4. FOLINIC ACID [Concomitant]
  5. FLUOROURACIL [Concomitant]
  6. IRINOTECAN [Concomitant]

REACTIONS (5)
  - Death [Fatal]
  - Metastases to liver [Unknown]
  - Diarrhoea [Unknown]
  - Abdominal pain upper [Unknown]
  - Weight decreased [Unknown]
